FAERS Safety Report 20740377 (Version 1)
Quarter: 2022Q2

REPORT INFORMATION
  Report Type: Spontaneous
  Country: US (occurrence: US)
  Receive Date: 20220422
  Receipt Date: 20220422
  Transmission Date: 20220720
  Serious: Yes (Hospitalization)
  Sender: FDA-Public Use
  Company Number: US-VYERA PHARMACEUTICALS, LLC-2022VYE00014

PATIENT
  Age: 52 Year
  Sex: Female

DRUGS (1)
  1. DARAPRIM [Suspect]
     Active Substance: PYRIMETHAMINE
     Indication: Toxoplasmosis
     Dosage: 25 MG, 1X/DAY
     Route: 048
     Dates: start: 20211213

REACTIONS (2)
  - Dizziness [Recovered/Resolved]
  - Off label use [Not Recovered/Not Resolved]

NARRATIVE: CASE EVENT DATE: 20211213
